FAERS Safety Report 10583308 (Version 1)
Quarter: 2014Q4

REPORT INFORMATION
  Report Type: Spontaneous
  Country: DE (occurrence: None)
  Receive Date: 20141112
  Receipt Date: 20141112
  Transmission Date: 20150529
  Serious: Yes (Other)
  Sender: FDA-Public Use
  Company Number: DE2014016344

PATIENT
  Sex: Male
  Weight: 3.77 kg

DRUGS (3)
  1. PAROXETIN [Suspect]
     Active Substance: PAROXETINE HYDROCHLORIDE
     Indication: DEPRESSION
     Dosage: 40 [,G/D] UNTIL GW 30: 30MG/D, GW 35: 40 MG/D , MAYBE SOMETIMES JUST 20 MG/D: TRANSPLACENTAL
     Route: 064
     Dates: start: 20130718, end: 20140413
  2. FOLIC ACID. [Concomitant]
     Active Substance: FOLIC ACID
  3. TAVOR [Concomitant]
     Active Substance: LORAZEPAM

REACTIONS (3)
  - Myoclonus [None]
  - Foetal exposure during pregnancy [None]
  - Maternal drugs affecting foetus [None]
